FAERS Safety Report 25203966 (Version 1)
Quarter: 2025Q2

REPORT INFORMATION
  Report Type: Spontaneous
  Country: US (occurrence: None)
  Receive Date: 20250416
  Receipt Date: 20250416
  Transmission Date: 20250717
  Serious: Yes (Hospitalization, Disabling)
  Sender: FDA-CTU
  Company Number: None

PATIENT
  Age: 78 Year
  Sex: Female
  Weight: 81 kg

DRUGS (19)
  1. ZEPBOUND [Suspect]
     Active Substance: TIRZEPATIDE
     Indication: Weight decreased
     Dosage: OTHER QUANTITY : 1 INJECTION(S);?OTHER FREQUENCY : 1 TIME PER WEEK;?
     Route: 058
     Dates: start: 20250407, end: 20250407
  2. ALBUTEROL [Concomitant]
     Active Substance: ALBUTEROL
  3. ASPIRIN [Concomitant]
     Active Substance: ASPIRIN
  4. Atorrvastatin [Concomitant]
  5. SYMBICORT [Concomitant]
     Active Substance: BUDESONIDE\FORMOTEROL FUMARATE DIHYDRATE
  6. CALCIUM [Concomitant]
     Active Substance: CALCIUM
  7. CELEBREX [Concomitant]
     Active Substance: CELECOXIB
  8. VITAMIN D3 [Concomitant]
     Active Substance: CHOLECALCIFEROL
  9. DEVICE [Concomitant]
     Active Substance: DEVICE
  10. COLACE [Concomitant]
     Active Substance: DOCUSATE SODIUM
  11. Allegra prn [Concomitant]
  12. IMDUR [Concomitant]
     Active Substance: ISOSORBIDE MONONITRATE
  13. MAGNESIUM [Concomitant]
     Active Substance: MAGNESIUM
  14. TOPROL XL [Concomitant]
     Active Substance: METOPROLOL SUCCINATE
  15. Centram Silver [Concomitant]
  16. PREGABALIN [Concomitant]
     Active Substance: PREGABALIN
  17. AREDs2 [Concomitant]
  18. SYSTANE (HYPROMELLOSE 2910 (4000 MPA.S)) [Concomitant]
     Active Substance: HYPROMELLOSE 2910 (4000 MPA.S)
  19. TRAZODONE [Concomitant]
     Active Substance: TRAZODONE HYDROCHLORIDE

REACTIONS (1)
  - Transient ischaemic attack [None]

NARRATIVE: CASE EVENT DATE: 20250413
